FAERS Safety Report 8190348-X (Version None)
Quarter: 2012Q1

REPORT INFORMATION
  Report Type: 
  Country: None (occurrence: None)
  Receive Date: 20120307
  Receipt Date: 20120302
  Transmission Date: 20120608
  Serious: Yes (Other)
  Sender: FDA-Public Use
  Company Number: US-PFIZER INC-2012015337

PATIENT
  Age: 65 Year
  Sex: Male
  Weight: 102.04 kg

DRUGS (6)
  1. CELEBREX [Suspect]
     Indication: SURGERY
     Dosage: 100 MG, 1X/DAY
     Dates: end: 20111001
  2. ALLOPURINOL [Concomitant]
     Indication: GOUT
     Dosage: 300 MG, UNK
  3. METHADONE [Concomitant]
     Indication: PAIN
     Dosage: UNK
  4. ZANTAC [Concomitant]
     Indication: DYSPEPSIA
     Dosage: UNK
  5. CELEXA [Concomitant]
     Indication: DEPRESSION
     Dosage: UNK
  6. LORTAB [Suspect]
     Indication: BACK PAIN
     Dosage: 1.5 TO 2 TABLETS AS NEEDED
     Dates: start: 20110101

REACTIONS (6)
  - GLUCOSE TOLERANCE IMPAIRED [None]
  - SOMNOLENCE [None]
  - ACTIVITIES OF DAILY LIVING IMPAIRED [None]
  - BLOOD CHOLESTEROL INCREASED [None]
  - DRUG INEFFECTIVE [None]
  - HYPERTENSION [None]
